FAERS Safety Report 4328141-8 (Version None)
Quarter: 2004Q1

REPORT INFORMATION
  Report Type: 
  Country: None (occurrence: None)
  Receive Date: 20040325
  Receipt Date: 20040311
  Transmission Date: 20041129
  Serious: Yes (Other)
  Sender: FDA-Public Use
  Company Number: 8005777

PATIENT
  Age: 55 Year
  Sex: Female
  Weight: 90 kg

DRUGS (5)
  1. KEPPRA [Suspect]
     Indication: EPILEPSY
     Dosage: 1500 MG PO
     Route: 048
     Dates: start: 20010605
  2. LAMOTRIGINE [Suspect]
     Indication: EPILEPSY
     Dosage: 100 MG 2/D PO
     Route: 048
     Dates: start: 19970225, end: 20040201
  3. LAMOTRIGINE [Suspect]
     Indication: EPILEPSY
     Dosage: PO
     Route: 048
     Dates: start: 20040201
  4. PHENOBARBITONE [Concomitant]
  5. ELLESTE-SOLO [Concomitant]

REACTIONS (5)
  - ANOREXIA [None]
  - BALANCE DISORDER [None]
  - DRUG INTERACTION [None]
  - INSOMNIA [None]
  - THIRST [None]
